FAERS Safety Report 10655058 (Version 2)
Quarter: 2015Q1

REPORT INFORMATION
  Report Type: Spontaneous
  Country: TR (occurrence: TR)
  Receive Date: 20141216
  Receipt Date: 20150126
  Transmission Date: 20150720
  Serious: Yes (Death, Hospitalization)
  Sender: FDA-Public Use
  Company Number: TR-OTSUKA-US-2014-14515

PATIENT

DRUGS (3)
  1. DACOGEN [Suspect]
     Active Substance: DECITABINE
     Indication: REFRACTORY ANAEMIA WITH AN EXCESS OF BLASTS
     Dosage: 20 MG/M2, QD
     Route: 042
     Dates: start: 20130408, end: 20131129
  2. DACOGEN [Suspect]
     Active Substance: DECITABINE
     Dosage: UNK
     Route: 042
     Dates: start: 20140609, end: 20140613
  3. ANTIBIOTIC [Suspect]
     Active Substance: UNSPECIFIED INGREDIENT
     Indication: UNEVALUABLE EVENT
     Dosage: UNK
     Route: 065

REACTIONS (3)
  - Pancytopenia [Fatal]
  - Febrile neutropenia [Recovered/Resolved]
  - Acute leukaemia [Fatal]

NARRATIVE: CASE EVENT DATE: 20140520
